FAERS Safety Report 5728460-4 (Version None)
Quarter: 2008Q2

REPORT INFORMATION
  Report Type: 
  Country: None (occurrence: None)
  Receive Date: 20080430
  Receipt Date: 20080416
  Transmission Date: 20081010
  Serious: Yes (Life-Threatening)
  Sender: FDA-Public Use
  Company Number: S08-NLD-01250

PATIENT
  Age: 38 Year
  Sex: Female

DRUGS (3)
  1. LEXAPRO [Suspect]
     Dosage: 10 MG QD PO
     Route: 048
     Dates: start: 20070513
  2. OXAZEPAM [Suspect]
     Dosage: 10 MG QD PO
     Route: 048
     Dates: end: 20070602
  3. THYRAX DUOTAB (LEVOTHYROXINE) [Suspect]
     Dosage: 0.025 MG QD PO
     Route: 048
     Dates: start: 20070524

REACTIONS (3)
  - DRUG INTERACTION [None]
  - ELECTROCARDIOGRAM QT PROLONGED [None]
  - VENTRICULAR FIBRILLATION [None]
